FAERS Safety Report 4361093-3 (Version None)
Quarter: 2004Q2

REPORT INFORMATION
  Report Type: 
  Country: None (occurrence: None)
  Receive Date: 20040520
  Receipt Date: 20040513
  Transmission Date: 20050107
  Serious: Yes (Death)
  Sender: FDA-Public Use
  Company Number: FR-ROCHE-367796

PATIENT
  Sex: Female

DRUGS (2)
  1. PEGASYS [Suspect]
     Indication: HEPATIC CIRRHOSIS
     Route: 058
  2. RIBAVIRIN [Concomitant]
     Indication: HEPATIC CIRRHOSIS
     Route: 065

REACTIONS (2)
  - PERITONEAL INFECTION [None]
  - SEPTIC SHOCK [None]
